FAERS Safety Report 4960207-1 (Version None)
Quarter: 2006Q1

REPORT INFORMATION
  Report Type: 
  Country: None (occurrence: None)
  Receive Date: 20060328
  Receipt Date: 20060314
  Transmission Date: 20060701
  Serious: Yes (Hospitalization)
  Sender: FDA-Public Use
  Company Number: 223054

PATIENT
  Age: 43 Year
  Sex: Male
  Weight: 72.6 kg

DRUGS (2)
  1. AVASTIN [Suspect]
     Indication: PANCREATIC CARCINOMA
     Dosage: 10 MG/KG,
     Dates: start: 20060109, end: 20060220
  2. GEMCITABINE [Suspect]
     Indication: PANCREATIC CARCINOMA
     Dosage: 1000 MG/M2,
     Dates: start: 20060109, end: 20060227

REACTIONS (13)
  - ANOREXIA [None]
  - BLOOD BICARBONATE ABNORMAL [None]
  - CHOLANGITIS [None]
  - DEHYDRATION [None]
  - DIARRHOEA [None]
  - FATIGUE [None]
  - HAEMATOCRIT DECREASED [None]
  - HAEMOGLOBIN DECREASED [None]
  - NAUSEA [None]
  - ORAL INTAKE REDUCED [None]
  - POST PROCEDURAL COMPLICATION [None]
  - POST PROCEDURAL NAUSEA [None]
  - STENT OCCLUSION [None]
